FAERS Safety Report 5154923-9 (Version None)
Quarter: 2006Q4

REPORT INFORMATION
  Report Type: 
  Country: None (occurrence: None)
  Receive Date: 20061120
  Receipt Date: 20061120
  Transmission Date: 20070319
  Serious: Yes (Death, Hospitalization)
  Sender: FDA-Public Use
  Company Number: None

PATIENT
  Sex: Male
  Weight: 63.6 kg

DRUGS (4)
  1. FLUOROURACIL [Suspect]
     Dosage: 5020 MG
     Route: 040
     Dates: end: 20061108
  2. BEVACIZUMAB (RHUMAB VEGF) [Suspect]
     Dosage: 320 MG
     Dates: end: 20061108
  3. LEUCOVORIN CALCIUM [Suspect]
     Dosage: 720 MG
     Dates: end: 20061108
  4. ELOXATIN [Suspect]
     Dosage: 150 MG
     Dates: end: 20061108

REACTIONS (4)
  - CARDIAC ARREST [None]
  - NEUTROPHIL COUNT DECREASED [None]
  - PNEUMONIA [None]
  - VENTRICULAR FIBRILLATION [None]
